FAERS Safety Report 10067121 (Version 2)
Quarter: 2014Q2

REPORT INFORMATION
  Report Type: Spontaneous
  Country: US (occurrence: US)
  Receive Date: 20140409
  Receipt Date: 20140417
  Transmission Date: 20141212
  Serious: Yes (Other)
  Sender: FDA-Public Use
  Company Number: US-ASTRAZENECA-2014SE24127

PATIENT
  Age: 2 Year
  Sex: 0

DRUGS (13)
  1. CUBICIN [Suspect]
     Indication: ENTEROCOCCAL INFECTION
     Route: 042
     Dates: start: 20140325, end: 20140401
  2. CUBICIN [Suspect]
     Indication: ENTEROCOCCAL BACTERAEMIA
     Route: 042
     Dates: start: 20140325, end: 20140401
  3. CUBICIN [Suspect]
     Indication: CENTRAL NERVOUS SYSTEM INFECTION
     Route: 042
     Dates: start: 20140325, end: 20140401
  4. CUBICIN [Suspect]
     Indication: OFF LABEL USE
     Route: 042
     Dates: start: 20140325, end: 20140401
  5. CUBICIN [Suspect]
     Indication: ENTEROCOCCAL INFECTION
     Route: 042
     Dates: start: 20140402
  6. CUBICIN [Suspect]
     Indication: ENTEROCOCCAL BACTERAEMIA
     Route: 042
     Dates: start: 20140402
  7. CUBICIN [Suspect]
     Indication: CENTRAL NERVOUS SYSTEM INFECTION
     Route: 042
     Dates: start: 20140402
  8. CUBICIN [Suspect]
     Indication: OFF LABEL USE
     Route: 042
     Dates: start: 20140402
  9. VANCOMYCIN [Suspect]
     Indication: ENTEROCOCCAL INFECTION
     Route: 042
     Dates: start: 20140330
  10. MEROPENEM [Suspect]
     Indication: ENTEROCOCCAL INFECTION
     Dosage: UNK UNK, UNK
     Route: 042
  11. AMPICILLIN [Suspect]
     Indication: ENTEROCOCCAL INFECTION
     Route: 042
     Dates: start: 20140325
  12. GENTAMYCIN [Suspect]
     Indication: ENTEROCOCCAL INFECTION
     Route: 042
     Dates: start: 20140322
  13. LINEZOLID [Suspect]
     Indication: ENTEROCOCCAL INFECTION
     Dosage: UNK, UNK, UNK
     Route: 065

REACTIONS (4)
  - Enterococcal bacteraemia [Not Recovered/Not Resolved]
  - Cerebral ventricle dilatation [Not Recovered/Not Resolved]
  - Papilloedema [Not Recovered/Not Resolved]
  - Drug ineffective [Not Recovered/Not Resolved]
